FAERS Safety Report 23617427 (Version 1)
Quarter: 2024Q1

REPORT INFORMATION
  Report Type: Spontaneous
  Country: US (occurrence: None)
  Receive Date: 20240310
  Receipt Date: 20240310
  Transmission Date: 20240410
  Serious: Yes (Life-Threatening, Hospitalization)
  Sender: FDA-Public Use
  Company Number: None

PATIENT
  Age: 58 Year
  Sex: Female
  Weight: 106.5 kg

DRUGS (4)
  1. LINEZOLID [Suspect]
     Active Substance: LINEZOLID
     Indication: Osteomyelitis
     Dosage: FREQUENCY : TWICE A DAY;?
     Route: 042
     Dates: start: 20240215, end: 20240227
  2. LEVOFLOXACIN [Suspect]
     Active Substance: LEVOFLOXACIN
     Indication: Osteomyelitis
     Dosage: FREQUENCY : DAILY;?
     Route: 042
     Dates: start: 20240215, end: 20240227
  3. LINEZOLID [Concomitant]
     Active Substance: LINEZOLID
     Dates: start: 20240215, end: 20240227
  4. LEVOFLOXACIN [Concomitant]
     Active Substance: LEVOFLOXACIN
     Dates: start: 20240215, end: 20240227

REACTIONS (1)
  - Immune thrombocytopenia [None]

NARRATIVE: CASE EVENT DATE: 20240227
